FAERS Safety Report 23176541 (Version 1)
Quarter: 2023Q4

REPORT INFORMATION
  Report Type: Spontaneous
  Country: US (occurrence: None)
  Receive Date: 20231110
  Receipt Date: 20231110
  Transmission Date: 20240110
  Serious: Yes (Other)
  Sender: FDA-Public Use
  Company Number: None

PATIENT
  Age: 44 Year
  Sex: Female
  Weight: 64.35 kg

DRUGS (16)
  1. OZEMPIC [Suspect]
     Active Substance: SEMAGLUTIDE
     Indication: Cardiovascular disorder
     Dosage: OTHER FREQUENCY : WEEKLY;?
     Route: 058
     Dates: start: 20220515, end: 20231101
  2. OZEMPIC [Suspect]
     Active Substance: SEMAGLUTIDE
     Indication: Obesity
  3. PROGESTERONE [Concomitant]
     Active Substance: PROGESTERONE
  4. ESTRADIOL [Concomitant]
     Active Substance: ESTRADIOL
  5. TESTOSTERONE [Concomitant]
     Active Substance: TESTOSTERONE
  6. DESLORATADINE [Concomitant]
     Active Substance: DESLORATADINE
  7. LEVOTHYROXINE [Concomitant]
     Active Substance: LEVOTHYROXINE
  8. LIOTHYRONINE [Concomitant]
     Active Substance: LIOTHYRONINE
  9. PROVIGIL [Concomitant]
     Active Substance: MODAFINIL
  10. VITAMINS [Concomitant]
     Active Substance: VITAMINS
  11. VITAMIN D3 [Concomitant]
     Active Substance: CHOLECALCIFEROL
  12. IRON [Concomitant]
     Active Substance: IRON
  13. FISH OIL [Concomitant]
     Active Substance: FISH OIL
  14. SELENIUM [Concomitant]
     Active Substance: SELENIUM
  15. ASPIRIN [Concomitant]
     Active Substance: ASPIRIN
  16. ZINC [Concomitant]
     Active Substance: PYRITHIONE ZINC\ZINC\ZINC CHLORIDE

REACTIONS (2)
  - Suicidal ideation [None]
  - Intentional self-injury [None]

NARRATIVE: CASE EVENT DATE: 20221101
